FAERS Safety Report 14861805 (Version 1)
Quarter: 2018Q2

REPORT INFORMATION
  Report Type: Spontaneous
  Country: GB (occurrence: GB)
  Receive Date: 20180508
  Receipt Date: 20180508
  Transmission Date: 20180711
  Serious: Yes (Other)
  Sender: FDA-Public Use
  Company Number: GB-ROCHE-2120032

PATIENT
  Age: 56 Year
  Sex: Male

DRUGS (2)
  1. PREDNISOLONE. [Concomitant]
     Active Substance: PREDNISOLONE
     Indication: POLYCHONDRITIS
     Dosage: LONG-TERM
     Route: 065
  2. RITUXIMAB. [Suspect]
     Active Substance: RITUXIMAB
     Indication: CRYOGLOBULINAEMIA
     Dosage: FOUR CYCLES
     Route: 065

REACTIONS (4)
  - Scab [Unknown]
  - Nodular vasculitis [Unknown]
  - Product use in unapproved indication [Unknown]
  - Vasculitic ulcer [Unknown]
